FAERS Safety Report 8005733-6 (Version None)
Quarter: 2011Q4

REPORT INFORMATION
  Report Type: 
  Country: None (occurrence: None)
  Receive Date: 20111223
  Receipt Date: 20111222
  Transmission Date: 20120403
  Serious: Yes (Death)
  Sender: FDA-Public Use
  Company Number: US-ABBOTT-11P-163-0886022-00

PATIENT
  Sex: Male
  Weight: 127.12 kg

DRUGS (2)
  1. DIURETICS [Concomitant]
     Indication: PRODUCT USED FOR UNKNOWN INDICATION
  2. HUMIRA [Suspect]
     Indication: PSORIATIC ARTHROPATHY
     Dates: start: 20090516, end: 20111215

REACTIONS (8)
  - CARDIAC FAILURE [None]
  - CHRONIC OBSTRUCTIVE PULMONARY DISEASE [None]
  - HYPERTENSION [None]
  - CARDIAC DISORDER [None]
  - EMPHYSEMA [None]
  - COR PULMONALE [None]
  - MYOCARDIAL INFARCTION [None]
  - RESPIRATORY TRACT CONGESTION [None]
